FAERS Safety Report 20458455 (Version 1)
Quarter: 2022Q1

REPORT INFORMATION
  Report Type: Other
  Country: US (occurrence: US)
  Receive Date: 20220211
  Receipt Date: 20220211
  Transmission Date: 20220424
  Serious: No
  Sender: FDA-Public Use
  Company Number: US-NEUROCRINE BIOSCIENCES INC.-2022NBI00642

PATIENT

DRUGS (2)
  1. INGREZZA [Suspect]
     Active Substance: VALBENAZINE
     Indication: Extrapyramidal disorder
     Dosage: 80 MILLIGRAM, QD
     Route: 048
     Dates: start: 20201019
  2. INGREZZA [Suspect]
     Active Substance: VALBENAZINE
     Dosage: 40 MILLIGRAM, QD
     Route: 048
     Dates: start: 20201012, end: 20201018

REACTIONS (3)
  - Sciatica [Unknown]
  - Therapeutic product effect incomplete [Unknown]
  - Off label use [Unknown]
